FAERS Safety Report 21987270 (Version 1)
Quarter: 2023Q1

REPORT INFORMATION
  Report Type: Report from Study
  Country: MX (occurrence: MX)
  Receive Date: 20230213
  Receipt Date: 20230213
  Transmission Date: 20230417
  Serious: Yes (Other)
  Sender: FDA-Public Use
  Company Number: MX-BIOGEN-2023BI01185926

PATIENT
  Sex: Male
  Weight: 52 kg

DRUGS (1)
  1. TYSABRI [Suspect]
     Active Substance: NATALIZUMAB
     Indication: Multiple sclerosis
     Dosage: 1 INTRAVENOUS INFUSION OF 300 MG OF TYSABRI (NATALIZUMAB) EVERY 4 WEEKS
     Route: 050
     Dates: start: 201805

REACTIONS (2)
  - Diabetes mellitus [Not Recovered/Not Resolved]
  - Dyskinesia [Not Recovered/Not Resolved]
